FAERS Safety Report 5151899-5 (Version None)
Quarter: 2006Q4

REPORT INFORMATION
  Report Type: 
  Country: None (occurrence: None)
  Receive Date: 20061109
  Receipt Date: 20061030
  Transmission Date: 20070319
  Serious: Yes (Hospitalization)
  Sender: FDA-Public Use
  Company Number: 863#3#2006-00015

PATIENT
  Age: 77 Year
  Sex: Female

DRUGS (12)
  1. IDROLAX (MACROGOL) [Suspect]
     Indication: DRUG USE FOR UNKNOWN INDICATION
     Dosage: 10 G (10 G 1IN 1 DAY(S)) ORAL
     Route: 048
     Dates: start: 20060922
  2. URAPIDIL (URAPIDIL) [Suspect]
     Indication: HYPERTENSION
     Dosage: 60 MG ORAL
     Route: 048
     Dates: start: 20060922
  3. INSULIN GLARGINE (INSULIN GLARGINE) [Suspect]
     Indication: INSULIN-REQUIRING TYPE II DIABETES MELLITUS
     Dosage: SUBCUTANEOUS
     Route: 058
     Dates: start: 20060917, end: 20061002
  4. CELIPROLOL (CELIPROLOL) [Suspect]
     Indication: HYPERTENSION
     Dosage: 200 MG ORAL
     Route: 048
  5. FUROSEMIDE [Suspect]
     Indication: HYPERTENSION
     Dosage: 40 MG ORAL
     Route: 048
  6. PANTOPRAZOLE SODIUM [Suspect]
     Indication: HIATUS HERNIA
     Dosage: 40 MG ORAL
     Route: 048
     Dates: start: 20060901
  7. PANTOPRAZOLE SODIUM [Concomitant]
  8. LEVOTHYROXINE SODIUM [Concomitant]
  9. ALLOPURINOL [Concomitant]
  10. FERROUS FUMARATE [Concomitant]
  11. DIOSMIN (DIOSMIN) [Concomitant]
  12. DI-GESIC (DEXTROPROPOXYPHENE HYDROCHLORIDE, PARACETAMOL) [Concomitant]

REACTIONS (2)
  - PRURITUS GENERALISED [None]
  - URTICARIA [None]
